FAERS Safety Report 15307191 (Version 3)
Quarter: 2019Q4

REPORT INFORMATION
  Report Type: Report from Study
  Country: US (occurrence: US)
  Receive Date: 20180822
  Receipt Date: 20191111
  Transmission Date: 20200122
  Serious: No
  Sender: FDA-Public Use
  Company Number: US-INCYTE CORPORATION-2018IN007656

PATIENT

DRUGS (3)
  1. JAKAFI [Suspect]
     Active Substance: RUXOLITINIB
     Indication: MYELOFIBROSIS
     Dosage: 10 MG, BID
     Route: 048
     Dates: start: 20161024
  2. ALPRAZOLAM. [Concomitant]
     Active Substance: ALPRAZOLAM
     Indication: PRODUCT USED FOR UNKNOWN INDICATION
     Dosage: UNK, PRN
     Route: 065
  3. JAKAFI [Suspect]
     Active Substance: RUXOLITINIB
     Indication: POLYCYTHAEMIA VERA

REACTIONS (9)
  - Skin weeping [Unknown]
  - Furuncle [Unknown]
  - Malaise [Unknown]
  - Mass [Unknown]
  - Pyrexia [Unknown]
  - Skin haemorrhage [Unknown]
  - Sinusitis [Unknown]
  - Diarrhoea [Unknown]
  - Skin laceration [Unknown]

NARRATIVE: CASE EVENT DATE: 201807
